FAERS Safety Report 7784091-6 (Version None)
Quarter: 2011Q3

REPORT INFORMATION
  Report Type: 
  Country: None (occurrence: None)
  Receive Date: 20110926
  Receipt Date: 20110912
  Transmission Date: 20111222
  Serious: Yes (Hospitalization)
  Sender: FDA-Public Use
  Company Number: 1000023995

PATIENT
  Age: 91 Year
  Sex: Female

DRUGS (13)
  1. EPTAVIT (CALCIUM, CHOLECALCIFEROL) (TABLETS) [Suspect]
     Dosage: 1 DOSAGE FORM (1000 MG/880 IU) (1 DOSAGE FORMS, 1 IN 1 D), ORAL
     Route: 048
     Dates: end: 20110817
  2. ARICEPT [Concomitant]
  3. MEMANTINE [Suspect]
     Dosage: 10 MG (10 MG, 1 IN 1 D), ORAL
     Route: 048
  4. LASILIX (FUROSEMIDE) (20 MILLIGRAM, TABLETS) (FUROSEMIDE) [Concomitant]
  5. BACTRIM [Suspect]
     Dosage: 0.0408 DOSAGE FORM (0.2857 DOSAGE FORMS, 1 IN 1 WK), ORAL
     Route: 048
     Dates: start: 20110330, end: 20110817
  6. POLYETHYLENE GLYCOL [Suspect]
     Dosage: 2 DOSAGE FORMS (2 DOSAGE FORMS, 1 IN 1 WK), ORAL
     Route: 048
     Dates: end: 20110817
  7. XANAX [Suspect]
     Dosage: 0.125 MG (0.125 MG, 1 IN 1 D), ORAL
     Route: 048
     Dates: end: 20110817
  8. SERETIDE 9FLUTICASONE PROPIONATE, SALMETEROL XINAFOATE) (INHALANT) [Suspect]
     Dosage: 250/50 MICROGRAMS/DOSE, RESPIRATORY (INHALATION)
     Route: 055
     Dates: end: 20110817
  9. LEVOTHYROX (LEVOTHYROXINE SODIUM) (50 MICROGRAM) (ACETYLSALICYLATE LYS [Concomitant]
  10. VENTOLINE (SALBUTAMOL) (SALBUTAMOL)(SALBUTAMOL) [Concomitant]
  11. FOSFOMYCIN (FOSFOMYCIN TROMETAMOL) (3 GRAM, GRANULATE) [Suspect]
     Dosage: 3 GRAMS (3 GM, 1 IN 1 D), ORAL
     Route: 048
     Dates: start: 20110330, end: 20110817
  12. LEVOTHYROX (LEVOTHYROXINE SODIUM) (50 MICROGRAM) (LEVOTHYROXINE SODIUM [Concomitant]
  13. KARDEGIC (ACETYLSALICYLATE LYSINE) (75 MILLIGRAM) (ACETYLSALICYLATE LY [Concomitant]

REACTIONS (5)
  - DYSPNOEA [None]
  - VOMITING [None]
  - LIPASE INCREASED [None]
  - BLOOD AMYLASE INCREASED [None]
  - MALAISE [None]
